FAERS Safety Report 6851197-5 (Version None)
Quarter: 2010Q3

REPORT INFORMATION
  Report Type: 
  Country: None (occurrence: None)
  Receive Date: 20100716
  Receipt Date: 20100707
  Transmission Date: 20110219
  Serious: Yes (Hospitalization, Other)
  Sender: FDA-Public Use
  Company Number: US-AMGEN-QUU423016

PATIENT
  Sex: Female

DRUGS (1)
  1. ENBREL [Suspect]
     Indication: ANKYLOSING SPONDYLITIS
     Route: 058
     Dates: start: 20090301

REACTIONS (6)
  - FALL [None]
  - FATIGUE [None]
  - LOWER LIMB FRACTURE [None]
  - PAIN [None]
  - SINUSITIS [None]
  - UPPER RESPIRATORY TRACT INFECTION [None]
